FAERS Safety Report 12081061 (Version 1)
Quarter: 2016Q1

REPORT INFORMATION
  Report Type: Spontaneous
  Country: CA (occurrence: CA)
  Receive Date: 20160216
  Receipt Date: 20160216
  Transmission Date: 20160526
  Serious: Yes (Death, Life-Threatening, Hospitalization, Disabling, Other)
  Sender: FDA-Public Use
  Company Number: CA-PFIZER INC-2016075628

PATIENT
  Age: 72 Year
  Sex: Female
  Weight: 89 kg

DRUGS (5)
  1. QUINAPRIL [Suspect]
     Active Substance: QUINAPRIL\QUINAPRIL HYDROCHLORIDE
     Indication: BLOOD PRESSURE MEASUREMENT
     Dosage: 20 MG, 1X/DAY
     Route: 048
  2. OMEPRAZOLE. [Concomitant]
     Active Substance: OMEPRAZOLE
  3. TYLENOL WITH CODEINE [Concomitant]
     Active Substance: ACETAMINOPHEN\CODEINE PHOSPHATE
  4. ACCUPRIL [Suspect]
     Active Substance: QUINAPRIL HYDROCHLORIDE
     Indication: BLOOD PRESSURE MEASUREMENT
     Dosage: 12.5 MG, 1X/DAY
     Route: 048
  5. ACCUPRIL [Suspect]
     Active Substance: QUINAPRIL HYDROCHLORIDE
     Dosage: 10 MG, 1X/DAY
     Route: 048

REACTIONS (12)
  - Weight increased [Fatal]
  - Ejection fraction decreased [Fatal]
  - Asthenia [Fatal]
  - Dyspnoea [Fatal]
  - Nausea [Fatal]
  - Peripheral swelling [Fatal]
  - Organ failure [Fatal]
  - Arrhythmia [Fatal]
  - Fatigue [Fatal]
  - Glomerular filtration rate decreased [Fatal]
  - Cardiac failure [Fatal]
  - Dysphonia [Fatal]
